FAERS Safety Report 16901201 (Version 3)
Quarter: 2019Q4

REPORT INFORMATION
  Report Type: Spontaneous
  Country: US (occurrence: US)
  Receive Date: 20191009
  Receipt Date: 20191024
  Transmission Date: 20200122
  Serious: Yes (Other)
  Sender: FDA-Public Use
  Company Number: US-LUNDBECK-DKLU3005603

PATIENT
  Age: 24 Year
  Sex: Male

DRUGS (2)
  1. ONFI [Suspect]
     Active Substance: CLOBAZAM
     Route: 065
     Dates: start: 20140307, end: 20190930
  2. ONFI [Suspect]
     Active Substance: CLOBAZAM
     Indication: LENNOX-GASTAUT SYNDROME
     Route: 065
     Dates: start: 20140318, end: 20190930

REACTIONS (3)
  - Drug withdrawal convulsions [Unknown]
  - Petit mal epilepsy [Unknown]
  - Product dose omission [Unknown]

NARRATIVE: CASE EVENT DATE: 20191001
